FAERS Safety Report 11330541 (Version 1)
Quarter: 2015Q3

REPORT INFORMATION
  Report Type: Spontaneous
  Country: US (occurrence: None)
  Receive Date: 20150730
  Receipt Date: 20150730
  Transmission Date: 20151125
  Serious: Yes (Other)
  Sender: FDA-Public Use
  Company Number: None

PATIENT
  Age: 55 Year
  Sex: Female

DRUGS (7)
  1. VITAMIN B COMPLEX [Concomitant]
     Active Substance: CYANOCOBALAMIN\DEXPANTHENOL\NIACINAMIDE\PYRIDOXINE HYDROCHLORIDE\RIBOFLAVIN 5^-PHOSPHATE SODIUM\THIAMINE HYDROCHLORIDE\VITAMIN B COMPLEX
  2. CALCIUM [Concomitant]
     Active Substance: CALCIUM
  3. PLEGRIDY [Suspect]
     Active Substance: PEGINTERFERON BETA-1A
     Indication: MULTIPLE SCLEROSIS
     Dosage: 125MCG  EVERY 14 DAYS  INJECTED UNDER THE SKIN
     Route: 058
     Dates: start: 20150710
  4. KEFLEX [Concomitant]
     Active Substance: CEPHALEXIN
  5. VITAMIN D [Concomitant]
     Active Substance: CHOLECALCIFEROL
  6. BLACK COHOSH [Concomitant]
     Active Substance: BLACK COHOSH
  7. FISH OIL [Concomitant]
     Active Substance: FISH OIL

REACTIONS (6)
  - Hypersensitivity [None]
  - Rash pruritic [None]
  - Injection site erythema [None]
  - Injection site warmth [None]
  - Injection site pruritus [None]
  - Product substitution issue [None]

NARRATIVE: CASE EVENT DATE: 20150724
